FAERS Safety Report 8124079-9 (Version None)
Quarter: 2012Q1

REPORT INFORMATION
  Report Type: 
  Country: None (occurrence: None)
  Receive Date: 20120209
  Receipt Date: 20120206
  Transmission Date: 20120608
  Serious: No
  Sender: FDA-Public Use
  Company Number: US-PFIZER INC-2012033035

PATIENT
  Sex: Female

DRUGS (2)
  1. ADVIL LIQUI-GELS [Suspect]
     Indication: ANTIINFLAMMATORY THERAPY
     Dosage: UNK,3X/DAY
     Route: 048
     Dates: end: 20120201
  2. ESTRADIOL [Concomitant]
     Dosage: 0.5 MG, DAILY

REACTIONS (2)
  - INCORRECT DOSE ADMINISTERED [None]
  - POOR QUALITY DRUG ADMINISTERED [None]
